FAERS Safety Report 8299868-0 (Version None)
Quarter: 2012Q2

REPORT INFORMATION
  Report Type: 
  Country: None (occurrence: None)
  Receive Date: 20120419
  Receipt Date: 20120327
  Transmission Date: 20120825
  Serious: Yes (Other)
  Sender: FDA-Public Use
  Company Number: NL-BAXTER-2012BAX002081

PATIENT
  Age: 53 Year
  Sex: Male

DRUGS (3)
  1. PHYSIONEAL 40 GLUCOSE 2.27% W/V / 22.7 MG/ML [Suspect]
     Route: 033
     Dates: start: 20090624
  2. EXTRANEAL [Suspect]
     Route: 033
     Dates: start: 20090624
  3. NUTRINEAL [Suspect]
     Route: 033
     Dates: start: 20090624

REACTIONS (1)
  - INFECTIOUS PERITONITIS [None]
